FAERS Safety Report 14173646 (Version 3)
Quarter: 2018Q3

REPORT INFORMATION
  Report Type: Spontaneous
  Country: US (occurrence: US)
  Receive Date: 20171109
  Receipt Date: 20180702
  Transmission Date: 20181010
  Serious: No
  Sender: FDA-Public Use
  Company Number: US-PFIZER INC-2017480414

PATIENT
  Age: 46 Year
  Sex: Female

DRUGS (1)
  1. XELJANZ XR [Suspect]
     Active Substance: TOFACITINIB CITRATE
     Indication: RHEUMATOID ARTHRITIS
     Dosage: 11 MG, 1X/DAY [ONCE DAILY]
     Route: 048
     Dates: start: 20170926

REACTIONS (9)
  - Nausea [Unknown]
  - Headache [Unknown]
  - Pyrexia [Unknown]
  - Oral herpes [Unknown]
  - Nasopharyngitis [Unknown]
  - Alopecia [Unknown]
  - Sinus disorder [Unknown]
  - Tongue disorder [Unknown]
  - Contusion [Unknown]

NARRATIVE: CASE EVENT DATE: 2017
